FAERS Safety Report 7517398-8 (Version None)
Quarter: 2011Q2

REPORT INFORMATION
  Report Type: 
  Country: None (occurrence: None)
  Receive Date: 20110601
  Receipt Date: 20100215
  Transmission Date: 20111010
  Serious: No
  Sender: FDA-Public Use
  Company Number: US-BAYER-201014160NA

PATIENT
  Sex: Female

DRUGS (1)
  1. AVELOX [Suspect]
     Route: 048

REACTIONS (4)
  - ASTHENIA [None]
  - NAUSEA [None]
  - DIZZINESS [None]
  - FATIGUE [None]
